FAERS Safety Report 8287438-X (Version None)
Quarter: 2012Q2

REPORT INFORMATION
  Report Type: 
  Country: None (occurrence: None)
  Receive Date: 20120416
  Receipt Date: 20120412
  Transmission Date: 20120825
  Serious: Yes (Death)
  Sender: FDA-Public Use
  Company Number: US-GILEAD-2012-0051154

PATIENT
  Sex: Female

DRUGS (3)
  1. LETAIRIS [Suspect]
     Indication: RHEUMATOID ARTHRITIS
  2. LETAIRIS [Suspect]
     Indication: PULMONARY HYPERTENSION
     Dosage: 5 MG, UNK
     Route: 048
     Dates: start: 20111111, end: 20120217
  3. VENTAVIS [Concomitant]

REACTIONS (3)
  - DYSPNOEA [None]
  - OEDEMA [None]
  - SUDDEN DEATH [None]
